FAERS Safety Report 24551970 (Version 1)
Quarter: 2024Q4

REPORT INFORMATION
  Report Type: Report from Study
  Country: GB (occurrence: GB)
  Receive Date: 20241026
  Receipt Date: 20241026
  Transmission Date: 20250115
  Serious: Yes (Death)
  Sender: ROCHE
  Company Number: GB-ROCHE-3074279

PATIENT
  Sex: Male

DRUGS (2)
  1. EVRYSDI [Suspect]
     Active Substance: RISDIPLAM
     Indication: Spinal muscular atrophy
     Dosage: (6.6ML ONCE DAILY)?STRENGTH: 0.75MG/ML DOSE: 5MG (6.6ML ONCE DAILY)? FREQUENCY TEXT:1
     Route: 065
     Dates: start: 20210512
  2. EVRYSDI [Suspect]
     Active Substance: RISDIPLAM
     Route: 065
     Dates: start: 202105

REACTIONS (6)
  - Product dispensing error [Unknown]
  - Muscular weakness [Unknown]
  - Dose calculation error [Unknown]
  - Weight decreased [Unknown]
  - COVID-19 [Unknown]
  - Death [Fatal]
